FAERS Safety Report 5717604-6 (Version None)
Quarter: 2008Q2

REPORT INFORMATION
  Report Type: 
  Country: None (occurrence: None)
  Receive Date: 20080425
  Receipt Date: 20080416
  Transmission Date: 20081010
  Serious: Yes (Hospitalization)
  Sender: FDA-Public Use
  Company Number: FR-BAYER-200816512GPV

PATIENT
  Age: 74 Year
  Sex: Female
  Weight: 69 kg

DRUGS (1)
  1. NEXAVAR [Suspect]
     Indication: THYROID CANCER
     Route: 048
     Dates: start: 20070608

REACTIONS (1)
  - DERMOID CYST [None]
